FAERS Safety Report 11030334 (Version 1)
Quarter: 2015Q2

REPORT INFORMATION
  Report Type: Spontaneous
  Country: US (occurrence: None)
  Receive Date: 20150413
  Receipt Date: 20150413
  Transmission Date: 20150821
  Serious: Yes (Hospitalization)
  Sender: FDA-Public Use
  Company Number: 2015M1011302

PATIENT
  Sex: Female

DRUGS (1)
  1. ALBUTEROL (SALBUTAMOL) UNKNOWN [Suspect]
     Active Substance: ALBUTEROL

REACTIONS (1)
  - Oxygen saturation decreased [None]
